FAERS Safety Report 13240388 (Version 1)
Quarter: 2017Q1

REPORT INFORMATION
  Report Type: Spontaneous
  Country: US (occurrence: US)
  Receive Date: 20170216
  Receipt Date: 20170216
  Transmission Date: 20170428
  Serious: No
  Sender: FDA-Public Use
  Company Number: US-RELYPSA-RLY2016003412

PATIENT
  Age: 62 Year
  Sex: Male

DRUGS (8)
  1. MULTIVITAMINS PLUS IRON [Concomitant]
  2. VELTASSA [Suspect]
     Active Substance: PATIROMER
     Dosage: 16.8 G, ON NON-DIALYSIS DAYS
     Route: 048
     Dates: start: 2016
  3. SENSIPAR [Concomitant]
     Active Substance: CINACALCET HYDROCHLORIDE
  4. LORAZEPAM. [Concomitant]
     Active Substance: LORAZEPAM
  5. LANTUS [Concomitant]
     Active Substance: INSULIN GLARGINE
  6. VELTASSA [Suspect]
     Active Substance: PATIROMER
     Indication: HYPERKALAEMIA
     Dosage: 8.4 G, QD
     Route: 048
     Dates: start: 20160913, end: 20161005
  7. METOPROLOL. [Concomitant]
     Active Substance: METOPROLOL
  8. VELTASSA [Suspect]
     Active Substance: PATIROMER
     Dosage: 16.8 G, QD
     Route: 048
     Dates: start: 20161006, end: 2016

REACTIONS (5)
  - Blood potassium increased [Unknown]
  - Nausea [Not Recovered/Not Resolved]
  - Drug administration error [Unknown]
  - Inappropriate schedule of drug administration [Not Recovered/Not Resolved]
  - Abdominal discomfort [Not Recovered/Not Resolved]

NARRATIVE: CASE EVENT DATE: 2016
